FAERS Safety Report 7229307-X (Version None)
Quarter: 2011Q1

REPORT INFORMATION
  Report Type: 
  Country: None (occurrence: None)
  Receive Date: 20110117
  Receipt Date: 20110106
  Transmission Date: 20110831
  Serious: Yes (Death, Hospitalization)
  Sender: FDA-Public Use
  Company Number: US-JNJFOC-20110101802

PATIENT
  Age: 35 Year
  Sex: Male

DRUGS (7)
  1. ACETAMINOPHEN [Suspect]
     Indication: PRODUCT USED FOR UNKNOWN INDICATION
  2. CITALOPRAM [Suspect]
     Indication: PRODUCT USED FOR UNKNOWN INDICATION
  3. LISINOPRIL [Suspect]
     Indication: PRODUCT USED FOR UNKNOWN INDICATION
  4. ALLOPURINOL [Suspect]
     Indication: PRODUCT USED FOR UNKNOWN INDICATION
  5. ACETAMINOPHEN [Suspect]
  6. COLCHICINE [Suspect]
     Indication: PRODUCT USED FOR UNKNOWN INDICATION
  7. AMLODIPINE [Suspect]
     Indication: PRODUCT USED FOR UNKNOWN INDICATION

REACTIONS (6)
  - RHABDOMYOLYSIS [None]
  - RENAL FAILURE [None]
  - HYPERKALAEMIA [None]
  - COMPLETED SUICIDE [None]
  - MULTIPLE DRUG OVERDOSE INTENTIONAL [None]
  - HEPATIC FAILURE [None]
